FAERS Safety Report 17645879 (Version 1)
Quarter: 2020Q2

REPORT INFORMATION
  Report Type: Spontaneous
  Country: GB (occurrence: GB)
  Receive Date: 20200408
  Receipt Date: 20200408
  Transmission Date: 20200713
  Serious: Yes (Hospitalization)
  Sender: FDA-Public Use
  Company Number: GB-MYLANLABS-2020M1035009

PATIENT
  Age: 44 Year
  Sex: Female

DRUGS (4)
  1. CLOZARIL [Suspect]
     Active Substance: CLOZAPINE
     Dosage: UNK, AM
     Route: 048
     Dates: start: 20200323
  2. CLOZARIL [Suspect]
     Active Substance: CLOZAPINE
     Dosage: UNK, AM
     Route: 048
     Dates: start: 20200327
  3. CLOZARIL [Suspect]
     Active Substance: CLOZAPINE
     Indication: SCHIZOPHRENIA
     Dosage: UNK
     Route: 048
     Dates: start: 20010723
  4. CLOZARIL [Suspect]
     Active Substance: CLOZAPINE
     Dosage: UNK
     Route: 048
     Dates: start: 20200326

REACTIONS (3)
  - Blood creatine phosphokinase increased [Unknown]
  - Hospitalisation [Unknown]
  - Catheter site infection [Unknown]

NARRATIVE: CASE EVENT DATE: 20200324
